FAERS Safety Report 6309383-9 (Version None)
Quarter: 2009Q3

REPORT INFORMATION
  Report Type: 
  Country: None (occurrence: None)
  Receive Date: 20090814
  Receipt Date: 20090811
  Transmission Date: 20100115
  Serious: Yes (Other)
  Sender: FDA-Public Use
  Company Number: FR-ASTRAZENECA-2009SE07715

PATIENT
  Sex: Female

DRUGS (13)
  1. FOSCAVIR [Suspect]
     Route: 042
     Dates: end: 20090101
  2. FOSCAVIR [Suspect]
     Route: 042
     Dates: start: 20090810
  3. INSULIN [Concomitant]
  4. NORADRENALINE [Concomitant]
  5. BENZODIAZEPINE [Concomitant]
  6. MORPHINE [Concomitant]
  7. NIMBEX [Concomitant]
  8. TAZOCILLINE [Concomitant]
  9. ROCEPHIN [Concomitant]
  10. AMIKLIN [Concomitant]
  11. LOVENOX [Concomitant]
  12. NEXIUM [Concomitant]
  13. LEVOTHYROX [Concomitant]

REACTIONS (1)
  - RENAL FAILURE [None]
